FAERS Safety Report 4549824-0 (Version None)
Quarter: 2004Q4

REPORT INFORMATION
  Report Type: 
  Country: None (occurrence: None)
  Receive Date: 20041227
  Receipt Date: 20041007
  Transmission Date: 20050328
  Serious: No
  Sender: FDA-Public Use
  Company Number: 04P-163-0276556-00

PATIENT
  Age: 70 Year
  Sex: Female
  Weight: 86.1834 kg

DRUGS (11)
  1. HUMIRA [Suspect]
     Indication: RHEUMATOID ARTHRITIS
     Dosage: 40 MG, 1 IN 2 WK, SUBCUTANEOUS
     Route: 058
     Dates: start: 20040601, end: 20040808
  2. HUMIRA [Suspect]
     Indication: RHEUMATOID ARTHRITIS
     Dosage: 40 MG, 1 IN 2 WK, SUBCUTANEOUS
     Route: 058
     Dates: start: 20041007
  3. PREDNISONE [Concomitant]
  4. BUCINDOLOL HYDROCHLORIDE [Concomitant]
  5. SERETIDE MITE [Concomitant]
  6. MONTELUKAST SODIUM [Concomitant]
  7. CROMOLYN SODIUM [Concomitant]
  8. FEXOFENADINE HYDROCHLORIDE [Concomitant]
  9. DIGOXIN [Concomitant]
  10. RISEDRONATE SODIUM [Concomitant]
  11. BUDESONIDE [Concomitant]

REACTIONS (1)
  - HERPES ZOSTER [None]
